FAERS Safety Report 9587291 (Version 2)
Quarter: 2013Q4

REPORT INFORMATION
  Report Type: Spontaneous
  Country: IT (occurrence: IT)
  Receive Date: 20131003
  Receipt Date: 20131108
  Transmission Date: 20140711
  Serious: Yes (Other)
  Sender: FDA-Public Use
  Company Number: IT-CELGENEUS-083-21660-13093217

PATIENT
  Age: 56 Year
  Sex: Female
  Weight: 70 kg

DRUGS (2)
  1. ABRAXANE [Suspect]
     Indication: BREAST CANCER
     Route: 041
     Dates: start: 20130315, end: 20130405
  2. ONDANSETRON [Concomitant]
     Indication: PRODUCT USED FOR UNKNOWN INDICATION
     Route: 041
     Dates: start: 20130315, end: 20130405

REACTIONS (8)
  - Pain [None]
  - Pigmentation disorder [None]
  - Pruritus [None]
  - Pain in extremity [None]
  - Alopecia [None]
  - Constipation [None]
  - Paraesthesia [None]
  - Chest pain [None]
